FAERS Safety Report 7907080-7 (Version None)
Quarter: 2011Q4

REPORT INFORMATION
  Report Type: 
  Country: None (occurrence: None)
  Receive Date: 20111110
  Receipt Date: 20110713
  Transmission Date: 20120403
  Serious: No
  Sender: FDA-Public Use
  Company Number: US-ASTRAZENECA-2011SE42119

PATIENT
  Sex: Male

DRUGS (2)
  1. LISINOPRIL [Suspect]
     Indication: BLOOD PRESSURE ABNORMAL
     Route: 048
  2. CLONIDINE [Suspect]
     Indication: BLOOD PRESSURE ABNORMAL
     Route: 065

REACTIONS (2)
  - HYPERTENSION [None]
  - DRUG INEFFECTIVE [None]
